FAERS Safety Report 25974508 (Version 1)
Quarter: 2025Q4

REPORT INFORMATION
  Report Type: Spontaneous
  Country: EU (occurrence: None)
  Receive Date: 20251029
  Receipt Date: 20251029
  Transmission Date: 20260117
  Serious: Yes (Other)
  Sender: ORGANON
  Company Number: EU-ORGANON-O2509SVN002410

PATIENT
  Age: 36 Year
  Sex: Female

DRUGS (1)
  1. ETONOGESTREL [Suspect]
     Active Substance: ETONOGESTREL
     Indication: Assisted fertilisation
     Dosage: 1 IMPLANT
     Dates: start: 20250724, end: 20250813

REACTIONS (5)
  - Implant site necrosis [Recovered/Resolved with Sequelae]
  - Fat necrosis [Recovered/Resolved with Sequelae]
  - Postoperative wound infection [Recovered/Resolved with Sequelae]
  - Complication of device removal [Recovered/Resolved]
  - Product use in unapproved indication [Unknown]

NARRATIVE: CASE EVENT DATE: 20250101
